FAERS Safety Report 24817995 (Version 2)
Quarter: 2025Q1

REPORT INFORMATION
  Report Type: Spontaneous
  Country: US (occurrence: US)
  Receive Date: 20250108
  Receipt Date: 20250121
  Transmission Date: 20250408
  Serious: Yes (Other)
  Sender: STALLERGENES
  Company Number: US-STALCOR-2025-AER-00035

PATIENT
  Age: 13 Year
  Sex: Male
  Weight: 74.84 kg

DRUGS (2)
  1. PALFORZIA [Suspect]
     Active Substance: PEANUT
     Indication: Food allergy
     Route: 048
     Dates: start: 2021, end: 2021
  2. PALFORZIA [Suspect]
     Active Substance: PEANUT
     Route: 048
     Dates: start: 2021

REACTIONS (5)
  - Eosinophilic oesophagitis [Recovered/Resolved]
  - Oedema [Recovered/Resolved]
  - Pharyngeal oedema [Recovered/Resolved]
  - Dyspepsia [Recovered/Resolved]
  - Throat irritation [Recovered/Resolved]

NARRATIVE: CASE EVENT DATE: 20210101
